FAERS Safety Report 7457589-8 (Version None)
Quarter: 2011Q1

REPORT INFORMATION
  Report Type: 
  Country: None (occurrence: None)
  Receive Date: 20110302
  Receipt Date: 20100927
  Transmission Date: 20110831
  Serious: Yes (Disabling)
  Sender: FDA-Public Use
  Company Number: 163-21880-10082808

PATIENT
  Age: 77 Year
  Sex: Female

DRUGS (4)
  1. COMPAZINE [Concomitant]
  2. REVLIMID [Suspect]
     Indication: MULTIPLE MYELOMA
     Dosage: 15 MG, DAILY, PO
     Route: 048
     Dates: start: 20091230, end: 20100312
  3. PRILOSEC [Concomitant]
  4. DECADRON [Concomitant]

REACTIONS (2)
  - SKIN LESION [None]
  - FLUID RETENTION [None]
